FAERS Safety Report 11194965 (Version 2)
Quarter: 2015Q3

REPORT INFORMATION
  Report Type: Spontaneous
  Country: US (occurrence: US)
  Receive Date: 20150617
  Receipt Date: 20150812
  Transmission Date: 20151125
  Serious: Yes (Death)
  Sender: FDA-Public Use
  Company Number: US-PFIZER INC-2015084034

PATIENT
  Age: 67 Year
  Sex: Male

DRUGS (28)
  1. LYRICA [Suspect]
     Active Substance: PREGABALIN
     Indication: NEURALGIA
     Dosage: 100 MG, 3X/DAY
     Route: 048
     Dates: end: 20150421
  2. LASIX [Concomitant]
     Active Substance: FUROSEMIDE
     Dosage: 80 MG, 1X/DAY EVERY MORNING
     Route: 048
  3. TEMOVATE [Concomitant]
     Active Substance: CLOBETASOL PROPIONATE
     Dosage: 1 DF (1 APPLICATION), 2X/DAY
     Route: 061
  4. K-DUR [Concomitant]
     Active Substance: POTASSIUM CHLORIDE
     Dosage: 10 MEQ (TBTQ), 1X/DAY
     Route: 048
     Dates: start: 2013
  5. ATARAX [Concomitant]
     Active Substance: HYDROXYZINE\HYDROXYZINE HYDROCHLORIDE
     Indication: PRURITUS
     Dosage: 50 MG, 3X/DAY (EVERY 8 HOURS AS NEEDED)
     Route: 048
     Dates: start: 2014
  6. COREG [Concomitant]
     Active Substance: CARVEDILOL
     Dosage: 6.25 MG, 2X/DAY
     Route: 048
  7. NORCO [Concomitant]
     Active Substance: ACETAMINOPHEN\HYDROCODONE BITARTRATE
     Indication: PAIN
     Dosage: [HYDROCODONE BITARTRATE 5MG]/[PARACETAMOL 325 MG], 4X/DAY (EVERY 6 HOURS AS NEEDED)
     Route: 048
     Dates: start: 2010
  8. LIDEX [Concomitant]
     Active Substance: FLUOCINONIDE
     Indication: PRURITUS
     Dosage: 1 DF (1 APPLICATION), 3X/DAY
     Route: 061
  9. KLONOPIN [Concomitant]
     Active Substance: CLONAZEPAM
     Indication: ABDOMINAL PAIN
  10. VENTOLIN HFA [Concomitant]
     Active Substance: ALBUTEROL SULFATE
     Indication: WHEEZING
     Dosage: 2 DF, 4X/DAY (2 PUFFS BY INHALATION EVERY 6 HOURS AS NEEDED)
  11. PROVENTIL HFA [Concomitant]
     Active Substance: ALBUTEROL SULFATE
     Indication: WHEEZING
     Dosage: 2 DF, 4X/DAY (2 PUFFS BY INHALATION EVERY 6 HOURS, AS NEEDED)
     Dates: start: 2013
  12. VENTOLIN HFA [Concomitant]
     Active Substance: ALBUTEROL SULFATE
     Indication: DYSPNOEA
  13. VITAMIN B12 [Concomitant]
     Active Substance: CYANOCOBALAMIN
     Dosage: 1 ML, MONTHLY
     Route: 030
  14. ERYTHROMYCIN. [Concomitant]
     Active Substance: ERYTHROMYCIN
     Dosage: 1 DF (1 APPLICATION), 2X/DAY
     Route: 061
  15. KLONOPIN [Concomitant]
     Active Substance: CLONAZEPAM
     Indication: NEURALGIA
     Dosage: 0.5 MG, 2X/DAY AS NEEDED
     Route: 048
  16. PRILOSEC [Concomitant]
     Active Substance: OMEPRAZOLE MAGNESIUM
     Dosage: 40 MG, DAILY
     Route: 048
  17. PROVENTIL HFA [Concomitant]
     Active Substance: ALBUTEROL SULFATE
     Indication: DYSPNOEA
  18. PROAIR HFA [Concomitant]
     Active Substance: ALBUTEROL SULFATE
     Indication: DYSPNOEA
  19. DELTASONE [Concomitant]
     Active Substance: PREDNISONE
     Dosage: 5 MG, 1X/DAY EVERY MORNING
     Route: 048
  20. NORCO [Concomitant]
     Active Substance: ACETAMINOPHEN\HYDROCODONE BITARTRATE
     Dosage: UNK UNK, AS NEEDED
  21. ZOCOR [Concomitant]
     Active Substance: SIMVASTATIN
     Dosage: 20 MG, 1X/DAY EVERY NIGHT
     Route: 048
     Dates: start: 2010
  22. CARAFATE [Concomitant]
     Active Substance: SUCRALFATE
     Dosage: 1 G, 4X/DAY
     Route: 048
     Dates: start: 2010
  23. DUONEB [Concomitant]
     Active Substance: ALBUTEROL SULFATE\IPRATROPIUM BROMIDE
     Indication: WHEEZING
     Dosage: 3 ML, AS NEEDED (IPRATROPIUM BROMIDE 0.5 MG/SALBUTAMOL 3 MG) (2.5MG BASE)/3 ML EVERY 4 HOURS AS NEED
     Route: 045
     Dates: start: 201402
  24. PERPHENAZINE-AMITRIPTYLINE [Concomitant]
     Active Substance: AMITRIPTYLINE\PERPHENAZINE
     Dosage: [PERPHENAZINE 2 MG]/[AMITRIPTYLINE 25 MG], 3X/DAY
     Route: 048
     Dates: start: 1995
  25. KLOR-CON M10 [Concomitant]
     Active Substance: POTASSIUM CHLORIDE
     Dosage: 10 MEQ (TBTQ), 1X/DAY
     Route: 048
     Dates: end: 20150421
  26. NITROSTAT [Concomitant]
     Active Substance: NITROGLYCERIN
     Indication: CHEST PAIN
     Dosage: 0.4 MG, UNK (ONE STAT, REPEAT Q 5MIN UNTIL RELIEVED TO MAX OF 3)
     Route: 060
  27. OXYCODONE HCL CONTROLLED-RELEASE [Concomitant]
     Active Substance: OXYCODONE HYDROCHLORIDE
     Dosage: 60 MG, 2X/DAY
     Route: 048
  28. PROAIR HFA [Concomitant]
     Active Substance: ALBUTEROL SULFATE
     Indication: WHEEZING
     Dosage: 2 DF, 4X/DAY (2 PUFFS BY INHALATION EVERY 6 HOURS AS NEEDED)

REACTIONS (1)
  - Myocardial infarction [Fatal]
